FAERS Safety Report 9949601 (Version 1)
Quarter: 2014Q1

REPORT INFORMATION
  Report Type: Spontaneous
  Country: US (occurrence: None)
  Receive Date: 20140124
  Receipt Date: 20140124
  Transmission Date: 20141002
  Serious: Yes (Hospitalization, Other)
  Sender: FDA-Public Use
  Company Number: 2011AP000081

PATIENT
  Age: 85 Year
  Sex: Male

DRUGS (19)
  1. LISINOPRIL TABLETS [Suspect]
     Indication: PRODUCT USED FOR UNKNOWN INDICATION
     Route: 048
  2. TIZANIDINE HYDROCHLORIDE TABLETS [Suspect]
     Indication: BACK PAIN
     Route: 048
  3. ACETAMINOPHEN [Concomitant]
  4. CHLORPROMAZINE [Concomitant]
  5. CITALOPRAM [Concomitant]
  6. FINASTERIDE [Concomitant]
  7. LIDOCAINE [Concomitant]
  8. METFORMIN [Concomitant]
  9. PRAMIPEXOLE [Concomitant]
  10. OMEPRAZOLE [Concomitant]
  11. SIMVASTATIN [Concomitant]
  12. THEOPHYLLINE [Concomitant]
  13. DICLOFENAC [Concomitant]
  14. ONDANSETRON [Concomitant]
  15. ACETAMINOPHEN [Concomitant]
  16. HYDROCODONE [Concomitant]
  17. GUAIFENESIN [Concomitant]
  18. CODEINE [Concomitant]
  19. SULFAMETHOXAZOLE/TRIMETHOPRIM [Concomitant]

REACTIONS (2)
  - Hypotension [None]
  - Bradycardia [None]
